FAERS Safety Report 10898712 (Version 1)
Quarter: 2015Q1

REPORT INFORMATION
  Report Type: Spontaneous
  Country: US (occurrence: None)
  Receive Date: 20150303
  Receipt Date: 20150303
  Transmission Date: 20150721
  Serious: Yes (Other)
  Sender: FDA-Public Use
  Company Number: None

PATIENT
  Age: 83 Year
  Sex: Male
  Weight: 195 kg

DRUGS (14)
  1. GABAPENTIN. [Concomitant]
     Active Substance: GABAPENTIN
  2. SPIRIVA [Concomitant]
     Active Substance: TIOTROPIUM BROMIDE MONOHYDRATE
  3. TOPROL XL [Concomitant]
     Active Substance: METOPROLOL SUCCINATE
  4. DIGOXIN. [Concomitant]
     Active Substance: DIGOXIN
  5. COLACE [Concomitant]
     Active Substance: DOCUSATE SODIUM
  6. METAMUCIL [Concomitant]
     Active Substance: PLANTAGO SEED
  7. ENOXAPARIN SODIUM (INJECTION) [Suspect]
     Active Substance: ENOXAPARIN SODIUM
     Indication: CARDIAC OPERATION
     Dosage: 60 MG/0.6 ML 10 SYRINGES INJECT EVERY 12 HOURS INJECTION
     Dates: start: 20150110, end: 20150120
  8. CALCIUM +D [Concomitant]
     Active Substance: CALCIUM\VITAMIN D
  9. DILTIAZEM [Concomitant]
     Active Substance: DILTIAZEM
  10. TAMULOSIN [Concomitant]
     Active Substance: TAMSULOSIN
  11. MULTIVITAMINS [Concomitant]
     Active Substance: VITAMINS
  12. QVAR [Concomitant]
     Active Substance: BECLOMETHASONE DIPROPIONATE
  13. CHILDRENS BENADRYL ALLERGY [Concomitant]
     Active Substance: DIPHENHYDRAMINE HYDROCHLORIDE
  14. FINASTERIDE. [Concomitant]
     Active Substance: FINASTERIDE

REACTIONS (1)
  - Skin reaction [None]

NARRATIVE: CASE EVENT DATE: 20150201
